FAERS Safety Report 6403748-2 (Version None)
Quarter: 2009Q4

REPORT INFORMATION
  Report Type: 
  Country: None (occurrence: None)
  Receive Date: 20091013
  Receipt Date: 20090927
  Transmission Date: 20100525
  Serious: Yes (Death, Other)
  Sender: FDA-Public Use
  Company Number: 090929-0001027

PATIENT
  Age: 9 Month
  Sex: Male
  Weight: 7.1 kg

DRUGS (2)
  1. VIGABATRIN (VIGABATRIN) [Suspect]
     Indication: INFANTILE SPASMS
     Dosage: 175 MB;BID ; 350 MG;BID ; 90 MG;BID ; 175 MG;BID
  2. TOPIRAMATE [Concomitant]

REACTIONS (8)
  - BRAIN OEDEMA [None]
  - BRONCHOPNEUMONIA [None]
  - CEREBRAL VENTRICLE DILATATION [None]
  - DEPRESSED LEVEL OF CONSCIOUSNESS [None]
  - DRUG TOXICITY [None]
  - HYPOTONIA [None]
  - LOSS OF CONSCIOUSNESS [None]
  - PYREXIA [None]
